FAERS Safety Report 21936733 (Version 2)
Quarter: 2023Q2

REPORT INFORMATION
  Report Type: Spontaneous
  Country: PR (occurrence: PR)
  Receive Date: 20230201
  Receipt Date: 20230411
  Transmission Date: 20230722
  Serious: No
  Sender: FDA-Public Use
  Company Number: PR-PFIZER INC-PV202300018672

PATIENT
  Age: 57 Year
  Sex: Male

DRUGS (1)
  1. LORBRENA [Suspect]
     Active Substance: LORLATINIB
     Dosage: UNK

REACTIONS (2)
  - Neoplasm progression [Unknown]
  - Malaise [Unknown]
